FAERS Safety Report 9520345 (Version 1)
Quarter: 2013Q3

REPORT INFORMATION
  Report Type: Report from Study
  Country: BR (occurrence: BR)
  Receive Date: 20130912
  Receipt Date: 20130912
  Transmission Date: 20140515
  Serious: Yes (Hospitalization, Other)
  Sender: FDA-Public Use
  Company Number: PHHY2013BR098541

PATIENT
  Age: 56 Year
  Sex: Male

DRUGS (5)
  1. FORASEQ [Suspect]
     Dosage: UNK UKN, BID
  2. OMEPRAZOLE SANDOZ [Suspect]
     Dosage: 20 MG, QD (1 TIME A DAY IN FASTING)
  3. SINGULAIR [Suspect]
  4. SERETIDE [Suspect]
     Dosage: UNK (SALMETEROL 50 MCG,FLUTICASONE 250 MCG), BID
  5. SYMBICORT [Suspect]
     Dosage: UNK (FORMOTEROL 12 MCG, BUDESONIDE 400 MCG)

REACTIONS (11)
  - Wheezing [Unknown]
  - Dyspnoea [Unknown]
  - Hypertension [Unknown]
  - Diastolic dysfunction [Unknown]
  - Ejection fraction decreased [Unknown]
  - Rheumatoid arthritis [Unknown]
  - Nasal obstruction [Recovering/Resolving]
  - Asthenia [Unknown]
  - Lymphocyte count decreased [Unknown]
  - Snoring [Unknown]
  - Forced expiratory volume decreased [Unknown]
